FAERS Safety Report 16613358 (Version 1)
Quarter: 2019Q3

REPORT INFORMATION
  Report Type: Spontaneous
  Country: US (occurrence: US)
  Receive Date: 20190722
  Receipt Date: 20190722
  Transmission Date: 20191004
  Serious: Yes (Death)
  Sender: FDA-Public Use
  Company Number: None

PATIENT
  Age: 76 Year
  Sex: Female

DRUGS (19)
  1. ATORVASTATIN [Concomitant]
     Active Substance: ATORVASTATIN
  2. CYANOCOBALAMIN. [Concomitant]
     Active Substance: CYANOCOBALAMIN
  3. OMEPRAZOLE. [Concomitant]
     Active Substance: OMEPRAZOLE
  4. LIDOCAINE. [Concomitant]
     Active Substance: LIDOCAINE
  5. LORATADINE. [Concomitant]
     Active Substance: LORATADINE
  6. NYSTATIN. [Concomitant]
     Active Substance: NYSTATIN
  7. IBRANCE [Suspect]
     Active Substance: PALBOCICLIB
     Indication: METASTASIS
     Route: 048
     Dates: start: 20180622, end: 20190719
  8. RANITIDINE. [Concomitant]
     Active Substance: RANITIDINE
  9. SODIUM BICARBONATE. [Concomitant]
     Active Substance: SODIUM BICARBONATE
  10. GABAPENTIN. [Concomitant]
     Active Substance: GABAPENTIN
  11. METFORMIN [Concomitant]
     Active Substance: METFORMIN HYDROCHLORIDE
  12. SPIRONOLACTONE. [Concomitant]
     Active Substance: SPIRONOLACTONE
  13. BUMEX [Concomitant]
     Active Substance: BUMETANIDE
  14. FERROUS SULFATE. [Concomitant]
     Active Substance: FERROUS SULFATE
  15. QUINAPRIL. [Concomitant]
     Active Substance: QUINAPRIL
  16. JANUVIA [Concomitant]
     Active Substance: SITAGLIPTIN PHOSPHATE
  17. ATENOLOL. [Concomitant]
     Active Substance: ATENOLOL
  18. VENTOLIN [Concomitant]
     Active Substance: ALBUTEROL SULFATE
  19. ONDANSETRON [Concomitant]
     Active Substance: ONDANSETRON

REACTIONS (1)
  - Death [None]

NARRATIVE: CASE EVENT DATE: 20190719
